FAERS Safety Report 8229122-4 (Version None)
Quarter: 2012Q1

REPORT INFORMATION
  Report Type: 
  Country: None (occurrence: None)
  Receive Date: 20120322
  Receipt Date: 20120315
  Transmission Date: 20120608
  Serious: Yes (Life-Threatening, Hospitalization)
  Sender: FDA-Public Use
  Company Number: GR-PFIZER INC-2012069316

PATIENT
  Age: 32 Year
  Sex: Female

DRUGS (1)
  1. MISOPROSTOL [Suspect]
     Indication: OFF LABEL USE
     Route: 015

REACTIONS (8)
  - SHOCK HAEMORRHAGIC [None]
  - HYPOTENSION [None]
  - ACUTE RESPIRATORY DISTRESS SYNDROME [None]
  - RENAL FAILURE ACUTE [None]
  - URINARY BLADDER RUPTURE [None]
  - TRAUMATIC LUNG INJURY [None]
  - VAGINAL HAEMORRHAGE [None]
  - COAGULOPATHY [None]
